FAERS Safety Report 17536314 (Version 1)
Quarter: 2020Q1

REPORT INFORMATION
  Report Type: Spontaneous
  Country: US (occurrence: US)
  Receive Date: 20200313
  Receipt Date: 20200313
  Transmission Date: 20200409
  Serious: No
  Sender: FDA-Public Use
  Company Number: US-009507513-2003USA002133

PATIENT
  Age: 35 Year
  Sex: Female

DRUGS (1)
  1. INVANZ [Suspect]
     Active Substance: ERTAPENEM SODIUM
     Indication: CAPNOCYTOPHAGA SEPSIS
     Dosage: 10-DAY COURSE
     Route: 042

REACTIONS (1)
  - Product use in unapproved indication [Unknown]
